FAERS Safety Report 17794009 (Version 1)
Quarter: 2020Q2

REPORT INFORMATION
  Report Type: Report from Study
  Country: DE (occurrence: DE)
  Receive Date: 20200515
  Receipt Date: 20200515
  Transmission Date: 20200714
  Serious: Yes (Hospitalization)
  Sender: FDA-Public Use
  Company Number: DE-GILEAD-2019-0439329

PATIENT
  Sex: Male
  Weight: 85 kg

DRUGS (14)
  1. VIVEO [Concomitant]
  2. RITUXIMAB. [Concomitant]
     Active Substance: RITUXIMAB
  3. IDELALISIB [Suspect]
     Active Substance: IDELALISIB
     Indication: CHRONIC LYMPHOCYTIC LEUKAEMIA
     Dosage: 300 MG, QD
     Route: 048
     Dates: start: 20191107, end: 20200205
  4. ACTRAPID [Concomitant]
     Active Substance: INSULIN HUMAN
  5. SYMBICORT [Concomitant]
     Active Substance: BUDESONIDE\FORMOTEROL FUMARATE DIHYDRATE
  6. PARACETAMOL [Concomitant]
     Active Substance: ACETAMINOPHEN
  7. LANTUS [Concomitant]
     Active Substance: INSULIN GLARGINE
  8. RANITIDIN [Concomitant]
     Active Substance: RANITIDINE HYDROCHLORIDE
  9. L-THYROXINE [LEVOTHYROXINE] [Concomitant]
     Active Substance: LEVOTHYROXINE
  10. COTRIM [Concomitant]
     Active Substance: SULFAMETHOXAZOLE\TRIMETHOPRIM
  11. METOPROLOL. [Concomitant]
     Active Substance: METOPROLOL
  12. HCT CT [Concomitant]
  13. CLEMASTIN [Concomitant]
     Active Substance: CLEMASTINE
  14. SIMVASTATIN. [Concomitant]
     Active Substance: SIMVASTATIN

REACTIONS (2)
  - Influenza [Recovered/Resolved]
  - Neutropenia [Recovered/Resolved]

NARRATIVE: CASE EVENT DATE: 20191121
